FAERS Safety Report 12637478 (Version 1)
Quarter: 2016Q3

REPORT INFORMATION
  Report Type: Spontaneous
  Country: US (occurrence: US)
  Receive Date: 20160809
  Receipt Date: 20160809
  Transmission Date: 20161109
  Serious: No
  Sender: FDA-Public Use
  Company Number: US-BEH-2016062863

PATIENT
  Age: 42 Year
  Sex: Female
  Weight: 87 kg

DRUGS (33)
  1. DOXYCYCLINE. [Concomitant]
     Active Substance: DOXYCYCLINE
  2. TEGRETOL [Concomitant]
     Active Substance: CARBAMAZEPINE
  3. TRAMADOL. [Concomitant]
     Active Substance: TRAMADOL
  4. DIPHENHYDRAMINE. [Concomitant]
     Active Substance: DIPHENHYDRAMINE
  5. CRANBERRY. [Concomitant]
     Active Substance: CRANBERRY
  6. METFORMIN [Concomitant]
     Active Substance: METFORMIN HYDROCHLORIDE
  7. SINGULAIR [Concomitant]
     Active Substance: MONTELUKAST SODIUM
  8. KEFLEX [Concomitant]
     Active Substance: CEPHALEXIN
  9. PRILOSEC [Concomitant]
     Active Substance: OMEPRAZOLE MAGNESIUM
  10. FENOFIBRATE. [Concomitant]
     Active Substance: FENOFIBRATE
  11. SYMBICORT [Concomitant]
     Active Substance: BUDESONIDE\FORMOTEROL FUMARATE DIHYDRATE
  12. RITALIN [Concomitant]
     Active Substance: METHYLPHENIDATE HYDROCHLORIDE
  13. GABAPENTIN. [Concomitant]
     Active Substance: GABAPENTIN
  14. VITAMINS WITH MINERALS [Concomitant]
     Active Substance: MINERALS\VITAMINS
  15. EPIPEN [Concomitant]
     Active Substance: EPINEPHRINE
  16. FLUBLOK [Concomitant]
     Active Substance: INFLUENZA A VIRUS A/CALIFORNIA/7/2009 (H1N1) RECOMBINANT HEMAGGLUTININ ANTIGEN\INFLUENZA A VIRUS A/VICTORIA/361/2011 (H3N2) RECOMBINANT HEMAGGLUTININ ANTIGEN\INFLUENZA B VIRUS B/WISCONSIN/1/2010 RECOMBINANT HEMAGGLUTININ ANTIGEN
  17. VENTOLIN [Concomitant]
     Active Substance: ALBUTEROL SULFATE
  18. NORETHINDRONE. [Concomitant]
     Active Substance: NORETHINDRONE
  19. VITAMIN D2 [Concomitant]
     Active Substance: ERGOCALCIFEROL
  20. PRIVIGEN [Suspect]
     Active Substance: HUMAN IMMUNOGLOBULIN G
     Route: 042
     Dates: start: 20120816
  21. ACETAMINOPHEN. [Concomitant]
     Active Substance: ACETAMINOPHEN
  22. FLOMAX [Concomitant]
     Active Substance: TAMSULOSIN HYDROCHLORIDE
  23. PRIVIGEN [Suspect]
     Active Substance: HUMAN IMMUNOGLOBULIN G
     Route: 042
  24. CYANOCOBALAMIN. [Concomitant]
     Active Substance: CYANOCOBALAMIN
  25. LASIX [Concomitant]
     Active Substance: FUROSEMIDE
  26. PRIVIGEN [Suspect]
     Active Substance: HUMAN IMMUNOGLOBULIN G
     Indication: IMMUNODEFICIENCY COMMON VARIABLE
     Route: 042
  27. FLONASE [Concomitant]
     Active Substance: FLUTICASONE PROPIONATE
  28. ADVAIR HFA [Concomitant]
     Active Substance: FLUTICASONE PROPIONATE\SALMETEROL XINAFOATE
  29. SODIUM CHLORIDE. [Concomitant]
     Active Substance: SODIUM CHLORIDE
  30. LEVOTHYROXINE. [Concomitant]
     Active Substance: LEVOTHYROXINE
  31. CRESTOR [Concomitant]
     Active Substance: ROSUVASTATIN CALCIUM
  32. HEPARIN [Concomitant]
     Active Substance: HEPARIN SODIUM
  33. POTASSIUM [Concomitant]
     Active Substance: POTASSIUM

REACTIONS (2)
  - Tendonitis [Unknown]
  - Ligament sprain [Unknown]

NARRATIVE: CASE EVENT DATE: 20160405
